FAERS Safety Report 9451462 (Version 3)
Quarter: 2013Q3

REPORT INFORMATION
  Report Type: Spontaneous
  Country: IL (occurrence: IL)
  Receive Date: 20130810
  Receipt Date: 20130815
  Transmission Date: 20140515
  Serious: Yes (Hospitalization)
  Sender: FDA-Public Use
  Company Number: IL-ROCHE-1258196

PATIENT
  Age: 76 Year
  Sex: Male

DRUGS (4)
  1. ERIVEDGE [Suspect]
     Indication: BASAL CELL CARCINOMA
     Route: 048
     Dates: start: 20130701
  2. ALLOPURINOL [Concomitant]
     Route: 065
  3. SIMVASTATIN [Concomitant]
     Route: 065
  4. XATRAL [Concomitant]
     Route: 065

REACTIONS (1)
  - Hepatotoxicity [Recovered/Resolved]
